FAERS Safety Report 13631094 (Version 1)
Quarter: 2017Q2

REPORT INFORMATION
  Report Type: Spontaneous
  Country: PT (occurrence: PT)
  Receive Date: 20170608
  Receipt Date: 20170608
  Transmission Date: 20170830
  Serious: Yes (Hospitalization)
  Sender: FDA-Public Use
  Company Number: PHHY2017PT080787

PATIENT
  Age: 44 Year
  Sex: Female

DRUGS (2)
  1. CEFTRIAXONE. [Concomitant]
     Active Substance: CEFTRIAXONE
     Indication: ESCHERICHIA INFECTION
     Route: 065
  2. AMOXICILLIN CLAVULANIC ACID SANDOZ [Suspect]
     Active Substance: AMOXICILLIN\CLAVULANIC ACID
     Indication: CYSTITIS ESCHERICHIA
     Route: 065

REACTIONS (6)
  - Hypertension [Recovering/Resolving]
  - Hemiparesis [Recovering/Resolving]
  - Haematoma [Recovering/Resolving]
  - Leukocytosis [Unknown]
  - Headache [Recovering/Resolving]
  - Vomiting [Recovering/Resolving]
